FAERS Safety Report 8821105 (Version 1)
Quarter: 2012Q4

REPORT INFORMATION
  Report Type: 
  Country: AT (occurrence: AT)
  Receive Date: 20121002
  Receipt Date: 20121002
  Transmission Date: 20130627
  Serious: Yes (Hospitalization)
  Sender: FDA-Public Use
  Company Number: AT-GLAXOSMITHKLINE-B0809476A

PATIENT
  Sex: Male
  Weight: 60 kg

DRUGS (6)
  1. VOTRIENT [Suspect]
     Indication: METASTATIC RENAL CELL CARCINOMA
     Dosage: 800MG per day
     Route: 048
     Dates: start: 201112
  2. PANTOLOC [Concomitant]
     Indication: GASTRITIS
     Dosage: 40MG per day
  3. LASIX [Concomitant]
     Indication: CARDIAC FAILURE
     Dosage: 40MG per day
  4. THIAMAZOL [Concomitant]
     Indication: HYPERTHYROIDISM
  5. RAMIPRIL [Concomitant]
     Indication: HYPERTENSION
  6. LEGALON [Concomitant]
     Indication: HEPATIC CIRRHOSIS

REACTIONS (5)
  - Gastrointestinal haemorrhage [Recovered/Resolved]
  - Haematochezia [Unknown]
  - Rectal haemorrhage [Unknown]
  - Colitis [Unknown]
  - Gastroenteritis radiation [Unknown]
